FAERS Safety Report 25760214 (Version 1)
Quarter: 2025Q3

REPORT INFORMATION
  Report Type: Report from Study
  Country: US (occurrence: US)
  Receive Date: 20250904
  Receipt Date: 20250904
  Transmission Date: 20251021
  Serious: Yes (Hospitalization)
  Sender: TG THERAPEUTICS
  Company Number: US-TG THERAPEUTICS INC.-TGT005847

PATIENT

DRUGS (2)
  1. UBLITUXIMAB [Suspect]
     Active Substance: UBLITUXIMAB
     Indication: Multiple sclerosis
     Route: 042
     Dates: start: 20250318, end: 20250318
  2. UBLITUXIMAB [Suspect]
     Active Substance: UBLITUXIMAB
     Route: 042
     Dates: start: 20250401, end: 20250401

REACTIONS (5)
  - Surgery [Unknown]
  - Sepsis [Unknown]
  - Chills [Unknown]
  - Pyrexia [Unknown]
  - Thrombosis [Unknown]

NARRATIVE: CASE EVENT DATE: 20250801
